FAERS Safety Report 4596849-5 (Version None)
Quarter: 2005Q1

REPORT INFORMATION
  Report Type: 
  Country: None (occurrence: None)
  Receive Date: 20050228
  Receipt Date: 20050215
  Transmission Date: 20050727
  Serious: Yes (Hospitalization)
  Sender: FDA-Public Use
  Company Number: HQWYE212410FEB05

PATIENT
  Sex: Female

DRUGS (3)
  1. PHENERGAN [Suspect]
     Indication: MIGRAINE
     Dosage: ^TOOK A SUPPOSITORY^, RECTAL
     Route: 054
     Dates: start: 20030201, end: 20030201
  2. PHENERGAN [Suspect]
     Indication: NAUSEA
     Dosage: ^TOOK A SUPPOSITORY^, RECTAL
     Route: 054
     Dates: start: 20030201, end: 20030201
  3. EXCEDRIN (MIGRAINE) [Concomitant]

REACTIONS (1)
  - AMNESIA [None]
